FAERS Safety Report 17010029 (Version 1)
Quarter: 2019Q4

REPORT INFORMATION
  Report Type: Spontaneous
  Country: CA (occurrence: CA)
  Receive Date: 20191108
  Receipt Date: 20191108
  Transmission Date: 20200122
  Serious: Yes (Death, Hospitalization, Other)
  Sender: FDA-Public Use
  Company Number: CA-PFIZER INC-2019484228

PATIENT
  Age: 67 Year
  Sex: Female

DRUGS (5)
  1. METHOTREXATE SODIUM. [Suspect]
     Active Substance: METHOTREXATE SODIUM
     Indication: PSORIATIC ARTHROPATHY
     Dosage: 25 MG, UNK
  2. XELJANZ [Suspect]
     Active Substance: TOFACITINIB CITRATE
     Indication: PANCYTOPENIA
  3. ELTROMBOPAG [Suspect]
     Active Substance: ELTROMBOPAG
  4. ZOSTAVAX [Concomitant]
     Active Substance: VARICELLA-ZOSTER VIRUS STRAIN OKA/MERCK LIVE ANTIGEN
  5. NEUPOGEN [Concomitant]
     Active Substance: FILGRASTIM

REACTIONS (14)
  - Aplasia [Fatal]
  - Product use in unapproved indication [Unknown]
  - Pancytopenia [Fatal]
  - Neutrophil count decreased [Fatal]
  - Enterococcal infection [Fatal]
  - Off label use [Unknown]
  - Sepsis [Fatal]
  - Abscess [Fatal]
  - Febrile neutropenia [Fatal]
  - General physical health deterioration [Fatal]
  - Infection [Fatal]
  - Urinary tract disorder [Fatal]
  - Bone marrow failure [Fatal]
  - Pneumonia [Fatal]
